FAERS Safety Report 9515831 (Version 1)
Quarter: 2013Q1

REPORT INFORMATION
  Report Type: Spontaneous
  Country: US (occurrence: None)
  Receive Date: 20130305
  Receipt Date: 20130305
  Transmission Date: 20140127
  Serious: Yes (Hospitalization)
  Sender: FDA-Public Use
  Company Number: 163-21880-12120906

PATIENT
  Age: 78 Year
  Sex: Female

DRUGS (6)
  1. REVLIMID [Suspect]
     Indication: PLASMA CELL MYELOMA
     Dosage: 21 IN 28 D
     Route: 048
     Dates: start: 201207
  2. LOSARTAN (LOSARTAN) [Concomitant]
  3. FAMOTIDINE (FAMOTIDINE) [Concomitant]
  4. MVI (MVI) [Concomitant]
  5. CALCIUM VITAMIN D (CALCIUM D3 ^STADA^) [Concomitant]
  6. ZOLPIDEM (ZOLPIDEM) [Concomitant]

REACTIONS (2)
  - Pneumonia [None]
  - Sepsis [None]
